FAERS Safety Report 8830016 (Version 1)
Quarter: 2012Q4

REPORT INFORMATION
  Report Type: Spontaneous
  Country: US (occurrence: None)
  Receive Date: 20121005
  Receipt Date: 20121005
  Transmission Date: 20130627
  Serious: Yes (Life-Threatening)
  Sender: FDA-Public Use
  Company Number: None

PATIENT
  Age: 22 Year
  Sex: Male
  Weight: 106.1 kg

DRUGS (3)
  1. CHLORPROMAZINE [Suspect]
     Route: 058
     Dates: start: 20120904, end: 20120904
  2. CHLORPROMAZINE [Suspect]
     Route: 058
     Dates: start: 20120904, end: 20120904
  3. KETOROLAC TROMETHAMINE [Suspect]
     Dates: start: 20120904, end: 20120904

REACTIONS (1)
  - Anaphylactic reaction [None]
